FAERS Safety Report 17199191 (Version 1)
Quarter: 2019Q4

REPORT INFORMATION
  Report Type: Spontaneous
  Country: US (occurrence: US)
  Receive Date: 20191225
  Receipt Date: 20191225
  Transmission Date: 20200122
  Serious: No
  Sender: FDA-Public Use
  Company Number: US-009507513-1912USA010457

PATIENT
  Age: 58 Year
  Sex: Male

DRUGS (13)
  1. ERLOTINIB HYDROCHLORIDE. [Suspect]
     Active Substance: ERLOTINIB HYDROCHLORIDE
  2. INTRON A [Suspect]
     Active Substance: INTERFERON ALFA-2B
     Indication: METASTASES TO PLEURA
  3. EUCERIN 3% (UREA) [Suspect]
     Active Substance: UREA
  4. INTRON A [Suspect]
     Active Substance: INTERFERON ALFA-2B
     Indication: ANAEMIA
  5. IMODIUM A-D [Suspect]
     Active Substance: LOPERAMIDE HYDROCHLORIDE
  6. VITAMINS (UNSPECIFIED) [Suspect]
     Active Substance: VITAMINS
  7. INTRON A [Suspect]
     Active Substance: INTERFERON ALFA-2B
     Indication: LUNG CARCINOMA CELL TYPE UNSPECIFIED STAGE 0
     Dosage: STRENGTH: 18 MMIU/3ML, 300000 UNITS (0.05 ML)3 TIMES A WEEK
     Route: 023
  8. TARCEVA [Suspect]
     Active Substance: ERLOTINIB HYDROCHLORIDE
     Dosage: UNK
  9. ZOMETA [Suspect]
     Active Substance: ZOLEDRONIC ACID
  10. INTRON A [Suspect]
     Active Substance: INTERFERON ALFA-2B
     Indication: PLEURAL EFFUSION
  11. INTRON A [Suspect]
     Active Substance: INTERFERON ALFA-2B
     Indication: VENOUS THROMBOSIS
  12. TAGRISSO [Suspect]
     Active Substance: OSIMERTINIB
     Dosage: UNK
  13. INTRON A [Suspect]
     Active Substance: INTERFERON ALFA-2B
     Indication: EMBOLISM

REACTIONS (2)
  - Stomatitis [Unknown]
  - Product use in unapproved indication [Unknown]

NARRATIVE: CASE EVENT DATE: 201909
